FAERS Safety Report 9160848 (Version 1)
Quarter: 2013Q1

REPORT INFORMATION
  Report Type: Spontaneous
  Country: US (occurrence: None)
  Receive Date: 20130215
  Receipt Date: 20130215
  Transmission Date: 20140127
  Serious: Yes (Other)
  Sender: FDA-Public Use
  Company Number: US-010812

PATIENT
  Sex: Female

DRUGS (2)
  1. MENOPUR [Suspect]
  2. GONAL-F [Suspect]
     Route: 058

REACTIONS (4)
  - Pregnancy of unknown location [None]
  - Oestradiol abnormal [None]
  - Oestradiol increased [None]
  - Drug ineffective [None]
